FAERS Safety Report 9850286 (Version 2)
Quarter: 2014Q1

REPORT INFORMATION
  Report Type: Report from Study
  Country: JP (occurrence: JP)
  Receive Date: 20140128
  Receipt Date: 20140224
  Transmission Date: 20141002
  Serious: Yes (Hospitalization)
  Sender: FDA-Public Use
  Company Number: JP-GLAXOSMITHKLINE-B0963144A

PATIENT
  Age: 81 Year
  Sex: Male
  Weight: 45 kg

DRUGS (2)
  1. VOTRIENT 200MG [Suspect]
     Indication: MYXOID LIPOSARCOMA
     Dosage: 400MG PER DAY
     Route: 048
     Dates: start: 20130826, end: 20130923
  2. UNKNOWN DRUG [Suspect]
     Indication: METASTASES TO BONE
     Route: 048

REACTIONS (3)
  - Pneumonia [Not Recovered/Not Resolved]
  - Decreased appetite [Not Recovered/Not Resolved]
  - Dehydration [Not Recovered/Not Resolved]
